FAERS Safety Report 15422604 (Version 1)
Quarter: 2018Q3

REPORT INFORMATION
  Report Type: Spontaneous
  Country: AU (occurrence: AU)
  Receive Date: 20180925
  Receipt Date: 20180925
  Transmission Date: 20181010
  Serious: Yes (Hospitalization)
  Sender: FDA-Public Use
  Company Number: AU-ROCHE-2187321

PATIENT
  Age: 35 Year
  Sex: Male
  Weight: 60 kg

DRUGS (6)
  1. HALOPERIDOL. [Concomitant]
     Active Substance: HALOPERIDOL
     Indication: NAUSEA
     Route: 065
     Dates: start: 20180910
  2. CETUXIMAB. [Concomitant]
     Active Substance: CETUXIMAB
     Indication: COLORECTAL CANCER
     Route: 042
     Dates: start: 20180907
  3. CYCLIZINE [Concomitant]
     Active Substance: CYCLIZINE
     Indication: NAUSEA
     Route: 065
     Dates: start: 20180910
  4. COTELLIC [Suspect]
     Active Substance: COBIMETINIB
     Indication: COLORECTAL CANCER
     Route: 048
     Dates: start: 20180831
  5. HYDROMORPHONE [Concomitant]
     Active Substance: HYDROMORPHONE
     Indication: PAIN
     Route: 058
     Dates: start: 20180903
  6. ZELBORAF [Suspect]
     Active Substance: VEMURAFENIB
     Indication: COLORECTAL CANCER
     Route: 048
     Dates: start: 20180831

REACTIONS (4)
  - Off label use [Unknown]
  - Pyrexia [Recovered/Resolved]
  - Cholangitis [Unknown]
  - Intentional product use issue [Unknown]

NARRATIVE: CASE EVENT DATE: 20180914
